FAERS Safety Report 8098564-2 (Version None)
Quarter: 2012Q1

REPORT INFORMATION
  Report Type: 
  Country: None (occurrence: None)
  Receive Date: 20120129
  Receipt Date: 20110914
  Transmission Date: 20120608
  Serious: No
  Sender: FDA-Public Use
  Company Number: US-ABBOTT-11P-163-0854869-00

PATIENT
  Age: 45 Year
  Sex: Female

DRUGS (4)
  1. TRAZODONE HCL [Concomitant]
     Indication: PRODUCT USED FOR UNKNOWN INDICATION
     Dosage: AT BEDTIME
  2. OPIUM [Concomitant]
     Indication: PAIN
  3. ALPRAZOLAM [Concomitant]
     Indication: PRODUCT USED FOR UNKNOWN INDICATION
     Dosage: AT BEDTIME
  4. HUMIRA [Suspect]
     Indication: CROHN'S DISEASE
     Dates: start: 20110801

REACTIONS (2)
  - INJECTION SITE PAIN [None]
  - INCORRECT DOSE ADMINISTERED [None]
